FAERS Safety Report 8965571 (Version 1)
Quarter: 2012Q4

REPORT INFORMATION
  Report Type: Spontaneous
  Country: GB (occurrence: None)
  Receive Date: 20121205
  Receipt Date: 20121205
  Transmission Date: 20130627
  Serious: Yes (Hospitalization)
  Sender: FDA-Public Use
  Company Number: 2012-19439

PATIENT
  Age: 63 Year
  Sex: Male

DRUGS (2)
  1. DICLOFENAC [Suspect]
     Indication: ANALGESIC THERAPY
     Route: 048
     Dates: start: 201205, end: 201205
  2. OMEPRAZOLE (OMEPRAZOLE) [Concomitant]

REACTIONS (5)
  - Anaphylactic reaction [None]
  - Circulatory collapse [None]
  - Gastrointestinal hypermotility [None]
  - Pruritus generalised [None]
  - Rash generalised [None]
